FAERS Safety Report 13989181 (Version 3)
Quarter: 2017Q4

REPORT INFORMATION
  Report Type: Spontaneous
  Country: IT (occurrence: IT)
  Receive Date: 20170920
  Receipt Date: 20171004
  Transmission Date: 20180321
  Serious: Yes (Other)
  Sender: FDA-Public Use
  Company Number: IT-ACCORD-058613

PATIENT
  Age: 56 Year
  Sex: Female
  Weight: 61 kg

DRUGS (6)
  1. AVASTIN [Suspect]
     Active Substance: BEVACIZUMAB
     Indication: ADENOCARCINOMA OF COLON
     Dosage: PATIENT UNDERVENT 2ND, 4TH, 6TH AND 9TH CYCLE OF FOLFIRI/AVASTATIN
     Route: 042
     Dates: start: 20170302
  2. EUTIROX [Concomitant]
     Active Substance: LEVOTHYROXINE SODIUM
     Indication: PRODUCT USED FOR UNKNOWN INDICATION
  3. TORVAST [Concomitant]
     Active Substance: ATORVASTATIN
     Indication: PRODUCT USED FOR UNKNOWN INDICATION
  4. IRINOTECAN [Suspect]
     Active Substance: IRINOTECAN
     Indication: ADENOCARCINOMA OF COLON
     Dosage: ALSO RECEIVED 200 MG.
     Route: 042
     Dates: start: 20170302, end: 20170720
  5. LEVOFOLINIC ACID [Concomitant]
     Active Substance: LEVOLEUCOVORIN
     Indication: ADENOCARCINOMA OF COLON
     Dosage: ALSO RECEIVED INTRAVENOUS DRIP AT THE DOSE OF 257 MG
     Route: 042
     Dates: start: 20170302, end: 20170720
  6. FLUOROURACIL. [Suspect]
     Active Substance: FLUOROURACIL
     Indication: ADENOCARCINOMA OF COLON
     Dosage: PATIENT UNDERVENT 2ND, 4TH, 6TH AND 9TH CYCLE OF FOLFIRI/AVASTATIN.
     Route: 040
     Dates: start: 20170302

REACTIONS (6)
  - Diarrhoea [Unknown]
  - Neutropenia [Recovering/Resolving]
  - Abdominal pain [Unknown]
  - Infusion related reaction [Unknown]
  - Hypertension [Recovering/Resolving]
  - Thrombocytopenia [Unknown]

NARRATIVE: CASE EVENT DATE: 20170302
